FAERS Safety Report 14841741 (Version 4)
Quarter: 2019Q2

REPORT INFORMATION
  Report Type: Spontaneous
  Country: NL (occurrence: NL)
  Receive Date: 20180503
  Receipt Date: 20190523
  Transmission Date: 20190711
  Serious: Yes (Other)
  Sender: FDA-Public Use
  Company Number: NL-AUROBINDO-AUR-APL-2018-022351

PATIENT

DRUGS (1)
  1. LEVONORGESTREL+ETHINYLESTRADIOL 150/30 ?G FILM COATED TABLET [Suspect]
     Active Substance: ETHINYL ESTRADIOL\LEVONORGESTREL
     Indication: CONTRACEPTION
     Dosage: UNK
     Route: 048

REACTIONS (4)
  - Dysmenorrhoea [Unknown]
  - Placental disorder [Unknown]
  - Endometrial hyperplasia [Unknown]
  - Withdrawal bleed [Unknown]
